FAERS Safety Report 7667672-X (Version None)
Quarter: 2011Q3

REPORT INFORMATION
  Report Type: 
  Country: None (occurrence: None)
  Receive Date: 20110806
  Receipt Date: 20110407
  Transmission Date: 20111222
  Serious: No
  Sender: FDA-Public Use
  Company Number: US-ABBOTT-11P-163-0718017-00

PATIENT
  Sex: Female
  Weight: 44.038 kg

DRUGS (8)
  1. NIASPAN [Suspect]
  2. NIASPAN [Suspect]
  3. MORPHINE [Concomitant]
     Indication: PAIN
  4. ASPIRIN [Concomitant]
     Indication: FLUSHING
  5. NIASPAN [Suspect]
     Indication: BLOOD CHOLESTEROL
     Dates: start: 20090601
  6. ASPIRIN [Concomitant]
     Indication: PROPHYLAXIS
  7. NIASPAN [Suspect]
     Dates: start: 20091201, end: 20100401
  8. MORPHINE [Concomitant]
     Indication: SURGERY

REACTIONS (9)
  - FLUSHING [None]
  - HEPATIC STEATOSIS [None]
  - DIABETES MELLITUS [None]
  - ARTHRALGIA [None]
  - ARTHRITIS [None]
  - VOMITING [None]
  - PALPITATIONS [None]
  - WEIGHT DECREASED [None]
  - MYALGIA [None]
